FAERS Safety Report 7986563-8 (Version None)
Quarter: 2011Q4

REPORT INFORMATION
  Report Type: 
  Country: None (occurrence: None)
  Receive Date: 20111216
  Receipt Date: 20111212
  Transmission Date: 20120403
  Serious: No
  Sender: FDA-Public Use
  Company Number: US-B.I. PHARMACEUTICALS,INC./RIDGEFIELD-2011-BP-27974BP

PATIENT
  Sex: Female

DRUGS (7)
  1. THEOPHYLLINE [Concomitant]
     Indication: ASTHMA
  2. ALBUTEROL [Concomitant]
     Indication: ASTHMA
  3. ACCALATE [Concomitant]
     Indication: ASTHMA
  4. COUMADIN [Concomitant]
     Indication: DEEP VEIN THROMBOSIS
  5. METOPROLOL TARTRATE [Concomitant]
     Indication: HYPERTENSION
  6. NEXIUM [Concomitant]
     Indication: GASTROOESOPHAGEAL REFLUX DISEASE
  7. SPIRIVA [Suspect]
     Indication: ASTHMA
     Dosage: 18 MCG
     Route: 048

REACTIONS (1)
  - INCORRECT ROUTE OF DRUG ADMINISTRATION [None]
